FAERS Safety Report 26214435 (Version 1)
Quarter: 2025Q4

REPORT INFORMATION
  Report Type: Spontaneous
  Country: US (occurrence: US)
  Receive Date: 20251230
  Receipt Date: 20251230
  Transmission Date: 20260117
  Serious: No
  Sender: SANOFI AVENTIS
  Company Number: US-SA-2025SA388278

PATIENT
  Sex: Female
  Weight: 56.69 kg

DRUGS (9)
  1. DUPIXENT [Suspect]
     Active Substance: DUPILUMAB
     Indication: Eosinophilia
     Dosage: 300 MG: QOW
     Route: 058
  2. EPINEPHRINE [Concomitant]
     Active Substance: EPINEPHRINE
     Dosage: UNK
  3. PULMICORT FLEXHALER [Concomitant]
     Active Substance: BUDESONIDE
     Dosage: UNK
  4. MUCINEX [Concomitant]
     Active Substance: GUAIFENESIN
     Dosage: UNK
  5. ADVAIR HFA [Concomitant]
     Active Substance: FLUTICASONE PROPIONATE\SALMETEROL XINAFOATE
     Dosage: UNK
  6. ROFLUMILAST [Concomitant]
     Active Substance: ROFLUMILAST
     Dosage: UNK
  7. VENTOLIN HFA [Concomitant]
     Active Substance: ALBUTEROL SULFATE
     Dosage: UNK
  8. MONTELUKAST SODIUM [Concomitant]
     Active Substance: MONTELUKAST SODIUM
     Dosage: UNK
  9. SPIRIVA RESPIMAT [Concomitant]
     Active Substance: TIOTROPIUM BROMIDE
     Dosage: UNK

REACTIONS (3)
  - Condition aggravated [Unknown]
  - Product dose omission issue [Unknown]
  - Product use in unapproved indication [Unknown]
